FAERS Safety Report 5960464-9 (Version None)
Quarter: 2008Q4

REPORT INFORMATION
  Report Type: 
  Country: None (occurrence: None)
  Receive Date: 20081120
  Receipt Date: 20081113
  Transmission Date: 20090506
  Serious: No
  Sender: FDA-Public Use
  Company Number: US-B.I. PHARMACEUTICALS,INC./RIDGEFIELD-2008-BP-17272BP

PATIENT
  Sex: Male

DRUGS (7)
  1. SPIRIVA [Suspect]
     Indication: DYSPNOEA
     Dosage: 18MCG
     Route: 055
     Dates: start: 20060101
  2. ADVAIR DISKUS 100/50 [Concomitant]
  3. NERVE PILL [Concomitant]
  4. METOPROLOL TARTRATE [Concomitant]
  5. CARTIA XT [Concomitant]
  6. TIMOLOL [Concomitant]
     Indication: GLAUCOMA
  7. XALATAN [Concomitant]
     Indication: GLAUCOMA

REACTIONS (3)
  - CARDIAC DISORDER [None]
  - DRY MOUTH [None]
  - DYSPHONIA [None]
